FAERS Safety Report 5378726-5 (Version None)
Quarter: 2007Q3

REPORT INFORMATION
  Report Type: 
  Country: None (occurrence: None)
  Receive Date: 20070705
  Receipt Date: 20070629
  Transmission Date: 20080115
  Serious: Yes (Hospitalization, Disabling)
  Sender: FDA-Public Use
  Company Number: B0473800A

PATIENT
  Age: 77 Year
  Sex: Female
  Weight: 37 kg

DRUGS (9)
  1. PAXIL [Suspect]
     Indication: DEPRESSION
     Dosage: 10MG PER DAY
     Route: 048
     Dates: start: 20070512, end: 20070527
  2. SOLANAX [Concomitant]
     Indication: ANXIETY
     Route: 048
     Dates: start: 20060821, end: 20070527
  3. ALESION [Concomitant]
     Indication: PRURITUS
     Dosage: 20MG PER DAY
     Route: 048
     Dates: end: 20070527
  4. ASPIRIN [Concomitant]
     Indication: THROMBOSIS
     Dosage: 100MG PER DAY
     Route: 048
  5. VASOLAN [Concomitant]
     Indication: ARRHYTHMIA
     Dosage: 120MG PER DAY
     Route: 048
     Dates: end: 20070527
  6. MICARDIS [Concomitant]
     Indication: HYPERTENSION
     Dosage: 40MG PER DAY
     Route: 048
     Dates: end: 20070527
  7. NATRIX [Concomitant]
     Indication: HYPERTENSION
     Dosage: 1MG PER DAY
     Route: 048
     Dates: end: 20070527
  8. GASMOTIN [Concomitant]
     Indication: GASTRITIS
     Dosage: 15MG PER DAY
     Route: 048
     Dates: start: 20070525, end: 20070527
  9. MERISLON [Concomitant]
     Indication: DIZZINESS
     Dosage: 18MG PER DAY
     Route: 048
     Dates: end: 20070527

REACTIONS (3)
  - DYSPEPSIA [None]
  - HYPONATRAEMIA [None]
  - URINARY RETENTION [None]
